FAERS Safety Report 15403353 (Version 2)
Quarter: 2018Q4

REPORT INFORMATION
  Report Type: Spontaneous
  Country: CN (occurrence: CN)
  Receive Date: 20180919
  Receipt Date: 20181001
  Transmission Date: 20190204
  Serious: Yes (Hospitalization, Other)
  Sender: FDA-Public Use
  Company Number: CN-SAKK-2018SA259128AA

PATIENT
  Age: 62 Year
  Sex: Male

DRUGS (4)
  1. TICAGRELOR. [Suspect]
     Active Substance: TICAGRELOR
     Indication: ANTIPLATELET THERAPY
     Dosage: 90 MG, BID
     Route: 065
  2. CLOPIDOGREL BISULFATE. [Suspect]
     Active Substance: CLOPIDOGREL BISULFATE
     Indication: ANTIPLATELET THERAPY
     Dosage: 75 MG, QD
     Route: 065
  3. ASPIRIN [ACETYLSALICYLIC ACID] [Suspect]
     Active Substance: ASPIRIN
     Indication: ANTIPLATELET THERAPY
     Dosage: 100 MG, QD
     Route: 065
  4. CILOSTAZOL. [Suspect]
     Active Substance: CILOSTAZOL
     Indication: ANTIPLATELET THERAPY
     Dosage: 100 MG, BID
     Route: 065

REACTIONS (12)
  - Chronic kidney disease [Unknown]
  - Cerebral haemorrhage [Unknown]
  - Fatigue [Unknown]
  - Intentional product misuse [Unknown]
  - Dyspnoea [Recovered/Resolved]
  - Acute coronary syndrome [Unknown]
  - Atrial fibrillation [Unknown]
  - Drug resistance [Unknown]
  - Pulmonary congestion [Unknown]
  - Dizziness [Unknown]
  - Chest discomfort [Unknown]
  - Vomiting [Unknown]
